FAERS Safety Report 18044173 (Version 1)
Quarter: 2020Q3

REPORT INFORMATION
  Report Type: Spontaneous
  Country: US (occurrence: US)
  Receive Date: 20200719
  Receipt Date: 20200719
  Transmission Date: 20201103
  Serious: Yes (Other)
  Sender: FDA-Public Use
  Company Number: None

PATIENT
  Age: 57 Year
  Sex: Female
  Weight: 60.75 kg

DRUGS (3)
  1. SUDFED [Concomitant]
  2. NIFEDIPINE. [Suspect]
     Active Substance: NIFEDIPINE
     Indication: RAYNAUD^S PHENOMENON
     Dosage: ?          QUANTITY:1 TABLET(S);?
     Route: 048
     Dates: start: 20191014, end: 20191101
  3. ADIVL [Concomitant]

REACTIONS (5)
  - Pain [None]
  - Peripheral swelling [None]
  - Rheumatoid factor increased [None]
  - Product substitution issue [None]
  - Musculoskeletal stiffness [None]

NARRATIVE: CASE EVENT DATE: 20191014
